FAERS Safety Report 8801316 (Version 3)
Quarter: 2013Q3

REPORT INFORMATION
  Report Type: Spontaneous
  Country: US (occurrence: US)
  Receive Date: 20120921
  Receipt Date: 20130723
  Transmission Date: 20140515
  Serious: Yes (Hospitalization, Disabling, Other)
  Sender: FDA-Public Use
  Company Number: US-BAYER-2012-097921

PATIENT
  Age: 34 Year
  Sex: Female

DRUGS (8)
  1. YAZ [Suspect]
  2. YASMIN [Suspect]
  3. OCELLA [Suspect]
  4. NITROGLYCERIN [Concomitant]
     Indication: CHEST PAIN
  5. MORPHINE [Concomitant]
     Indication: CHEST PAIN
  6. LISINOPRIL [Concomitant]
     Dosage: 2.5 MG, DAILY
  7. TOPROL XL [Concomitant]
     Dosage: 25 DAILY
  8. LIPITOR [Concomitant]
     Dosage: 10 MG, DAILY

REACTIONS (8)
  - Myocardial infarction [None]
  - Injury [None]
  - Thrombosis [None]
  - Pain [None]
  - Emotional distress [None]
  - Anxiety [None]
  - Fear [None]
  - Pain [None]
